FAERS Safety Report 5801344-9 (Version None)
Quarter: 2008Q3

REPORT INFORMATION
  Report Type: 
  Country: None (occurrence: None)
  Receive Date: 20080707
  Receipt Date: 20080626
  Transmission Date: 20090109
  Serious: Yes (Hospitalization)
  Sender: FDA-Public Use
  Company Number: CN-NOVOPROD-275482

PATIENT
  Age: 21 Year
  Sex: Female
  Weight: 44 kg

DRUGS (3)
  1. NOVOLIN R [Suspect]
     Indication: TYPE 1 DIABETES MELLITUS
     Dosage: 12 IU, BID
  2. NOVOLIN R [Suspect]
     Dosage: 12 IU, QD
     Dates: start: 20080511, end: 20080513
  3. NOVOLIN R [Suspect]
     Dosage: 12 IU, BID
     Dates: start: 20080512

REACTIONS (2)
  - BLOOD GLUCOSE INCREASED [None]
  - DIABETIC KETOACIDOSIS [None]
